FAERS Safety Report 7767804-9 (Version None)
Quarter: 2011Q3

REPORT INFORMATION
  Report Type: 
  Country: None (occurrence: None)
  Receive Date: 20110922
  Receipt Date: 20101115
  Transmission Date: 20111222
  Serious: No
  Sender: FDA-Public Use
  Company Number: US-ASTRAZENECA-2010SE54381

PATIENT
  Age: 57 Year
  Sex: Female
  Weight: 62.1 kg

DRUGS (3)
  1. SEROQUEL XR [Suspect]
     Indication: SLEEP DISORDER
     Route: 048
     Dates: start: 20100201, end: 20100801
  2. SEROQUEL XR [Suspect]
     Indication: DECREASED APPETITE
     Route: 048
     Dates: start: 20100201, end: 20100801
  3. SEROQUEL XR [Suspect]
     Indication: DEPRESSION
     Route: 048
     Dates: start: 20100201, end: 20100801

REACTIONS (4)
  - WEIGHT INCREASED [None]
  - WEIGHT DECREASED [None]
  - PNEUMONIA [None]
  - DRUG DOSE OMISSION [None]
